FAERS Safety Report 7251585-1 (Version None)
Quarter: 2011Q1

REPORT INFORMATION
  Report Type: 
  Country: None (occurrence: None)
  Receive Date: 20110128
  Receipt Date: 20110117
  Transmission Date: 20110831
  Serious: Yes (Hospitalization)
  Sender: FDA-Public Use
  Company Number: CA-ELI_LILLY_AND_COMPANY-CA201101004155

PATIENT
  Age: 68 Year
  Sex: Female

DRUGS (4)
  1. CALCIUM [Concomitant]
  2. VITAMIN D [Concomitant]
  3. LOVAZA [Concomitant]
  4. FORTEO [Suspect]
     Indication: OSTEOPOROSIS
     Dosage: 20 UG, DAILY (1/D)
     Route: 058
     Dates: start: 20100809, end: 20110116

REACTIONS (1)
  - FEMUR FRACTURE [None]
